FAERS Safety Report 5022744-3 (Version None)
Quarter: 2006Q2

REPORT INFORMATION
  Report Type: 
  Country: None (occurrence: None)
  Receive Date: 20060609
  Receipt Date: 20060518
  Transmission Date: 20061013
  Serious: Yes (Disabling)
  Sender: FDA-Public Use
  Company Number: US-BOEHRINGER INGELHEIM PHARMACEUTICALS, INC.-2006-BP-05637BP

PATIENT
  Age: 34 Year
  Sex: Female

DRUGS (9)
  1. COMBIVENT [Suspect]
     Indication: DYSPNOEA
     Route: 055
     Dates: start: 20060418, end: 20060425
  2. COMBIVENT [Suspect]
     Indication: ASTHMA
  3. ADVAIR DISKUS 100/50 [Concomitant]
     Indication: DYSPNOEA
     Dates: start: 20060328
  4. PREDNISONE [Concomitant]
     Indication: DYSPNOEA
  5. XOPENEX/IPRATROPIUM NEBULIZER [Concomitant]
     Indication: DYSPNOEA
  6. NEXIUM [Concomitant]
     Indication: GASTROOESOPHAGEAL REFLUX DISEASE
  7. SYNTHROID [Concomitant]
     Indication: HYPOTHYROIDISM
  8. TOPAMAX [Concomitant]
     Indication: MIGRAINE PROPHYLAXIS
  9. XOPENEX HFA [Concomitant]
     Dates: start: 20060328

REACTIONS (1)
  - DYSPNOEA EXACERBATED [None]
